FAERS Safety Report 20367239 (Version 9)
Quarter: 2022Q4

REPORT INFORMATION
  Report Type: Report from Study
  Country: DE (occurrence: DE)
  Receive Date: 20220123
  Receipt Date: 20221222
  Transmission Date: 20230113
  Serious: Yes (Life-Threatening, Hospitalization, Other)
  Sender: FDA-Public Use
  Company Number: DE-SA-SAC20211230001248

PATIENT
  Age: 70 Year
  Sex: Male

DRUGS (51)
  1. CARFILZOMIB [Suspect]
     Active Substance: CARFILZOMIB
     Indication: Plasma cell myeloma refractory
     Dosage: 74 MG, OTHER, D8, D9
     Route: 065
     Dates: start: 20211129, end: 20211130
  2. CARFILZOMIB [Suspect]
     Active Substance: CARFILZOMIB
     Dosage: 74 MG, OTHER, D1, D2, D8, D9
     Route: 065
     Dates: start: 20220322, end: 20220330
  3. CARFILZOMIB [Suspect]
     Active Substance: CARFILZOMIB
     Dosage: 74 MG, OTHER, D1, D2, D8, D9
     Route: 065
     Dates: start: 20220517, end: 20220525
  4. CARFILZOMIB [Suspect]
     Active Substance: CARFILZOMIB
     Dosage: 74 MG, OTHER, D1, D2
     Route: 065
     Dates: start: 20220906, end: 20220907
  5. CARFILZOMIB [Suspect]
     Active Substance: CARFILZOMIB
     Dosage: 74 MG, OTHER, D1, D2, D8, D9
     Route: 065
     Dates: start: 20220419, end: 20220427
  6. CARFILZOMIB [Suspect]
     Active Substance: CARFILZOMIB
     Dosage: 74 MG, OTHER, D1, D2, D8, D9
     Route: 065
     Dates: start: 20220222, end: 20220302
  7. CARFILZOMIB [Suspect]
     Active Substance: CARFILZOMIB
     Dosage: 74 MG, OTHER, D1, D2, D8, D9
     Route: 065
     Dates: start: 20220125, end: 20220202
  8. CARFILZOMIB [Suspect]
     Active Substance: CARFILZOMIB
     Dosage: 74 MG, OTHER, D1, D2, D8, D9
     Route: 065
     Dates: start: 20220614, end: 20220622
  9. CARFILZOMIB [Suspect]
     Active Substance: CARFILZOMIB
     Dosage: 74 MG, OTHER, D1, D2, D8, D9
     Route: 065
     Dates: start: 20220809, end: 20220817
  10. CARFILZOMIB [Suspect]
     Active Substance: CARFILZOMIB
     Dosage: 27 MG, OTHER
     Route: 065
     Dates: start: 20211122, end: 20211123
  11. CARFILZOMIB [Suspect]
     Active Substance: CARFILZOMIB
     Dosage: 74 MG, OTHER, D1, D2, D8, D9
     Route: 065
     Dates: start: 20211220, end: 20220105
  12. CARFILZOMIB [Suspect]
     Active Substance: CARFILZOMIB
     Dosage: 74 MG, OTHER, D1, D2, D8, D9
     Route: 065
     Dates: start: 20220712, end: 20220720
  13. DEXAMETHASONE [Suspect]
     Active Substance: DEXAMETHASONE
     Indication: Plasma cell myeloma refractory
     Dosage: 20 MG, OTHER, D1, D2, D8, D9
     Route: 065
     Dates: start: 20220322, end: 20220330
  14. DEXAMETHASONE [Suspect]
     Active Substance: DEXAMETHASONE
     Dosage: 20 MG, OTHER, D1, D2, D8, D9
     Route: 065
     Dates: start: 20220809, end: 20220817
  15. DEXAMETHASONE [Suspect]
     Active Substance: DEXAMETHASONE
     Dosage: 20 MG, OTHER, D1, D2, D8, D9
     Route: 065
     Dates: start: 20211220, end: 20220105
  16. DEXAMETHASONE [Suspect]
     Active Substance: DEXAMETHASONE
     Dosage: 20 MG, OTHER, D1, D2, D8, D9
     Route: 065
     Dates: start: 20220222, end: 20220302
  17. DEXAMETHASONE [Suspect]
     Active Substance: DEXAMETHASONE
     Dosage: 20 MG, OTHER, D1, D2, D8, D9
     Route: 065
     Dates: start: 20220419, end: 20220427
  18. DEXAMETHASONE [Suspect]
     Active Substance: DEXAMETHASONE
     Dosage: 20 MG, OTHER, D1, D2
     Route: 065
     Dates: start: 20220906, end: 20220907
  19. DEXAMETHASONE [Suspect]
     Active Substance: DEXAMETHASONE
     Dosage: 20 MG, OTHER, D1, D2, D8, D9
     Route: 065
     Dates: start: 20220712, end: 20220720
  20. DEXAMETHASONE [Suspect]
     Active Substance: DEXAMETHASONE
     Dosage: 20 MG, OTHER, D1, D2, D8, D9
     Route: 065
     Dates: start: 20220125, end: 20220205
  21. DEXAMETHASONE [Suspect]
     Active Substance: DEXAMETHASONE
     Dosage: 20 MG, OTHER, D1, D2, D8, D9
     Route: 065
     Dates: start: 20211122, end: 20211130
  22. DEXAMETHASONE [Suspect]
     Active Substance: DEXAMETHASONE
     Dosage: 20 MG, OTHER, D1, D2, D8, D9
     Route: 065
     Dates: start: 20220517, end: 20220525
  23. DEXAMETHASONE [Suspect]
     Active Substance: DEXAMETHASONE
     Dosage: 20 MG, OTHER, D1, D2, D8, D9
     Route: 065
     Dates: start: 20220614, end: 20220622
  24. ISATUXIMAB [Suspect]
     Active Substance: ISATUXIMAB
     Indication: Plasma cell myeloma refractory
     Dosage: 680 MG, OTHER
     Route: 040
     Dates: start: 20220517, end: 20220517
  25. ISATUXIMAB [Suspect]
     Active Substance: ISATUXIMAB
     Dosage: 680 MG, OTHER
     Route: 040
     Dates: start: 20220419, end: 20220419
  26. ISATUXIMAB [Suspect]
     Active Substance: ISATUXIMAB
     Dosage: 680 MG, OTHER
     Route: 040
     Dates: start: 20220614, end: 20220614
  27. ISATUXIMAB [Suspect]
     Active Substance: ISATUXIMAB
     Dosage: 680 MG, OTHER
     Route: 040
     Dates: start: 20220222, end: 20220222
  28. ISATUXIMAB [Suspect]
     Active Substance: ISATUXIMAB
     Dosage: 680 MG, OTHER
     Route: 040
     Dates: start: 20220322, end: 20220322
  29. ISATUXIMAB [Suspect]
     Active Substance: ISATUXIMAB
     Dosage: 680 MG, OTHER
     Route: 040
     Dates: start: 20220125, end: 20220125
  30. ISATUXIMAB [Suspect]
     Active Substance: ISATUXIMAB
     Dosage: 680 MG, OTHER
     Route: 040
     Dates: start: 20220809, end: 20220809
  31. ISATUXIMAB [Suspect]
     Active Substance: ISATUXIMAB
     Dosage: 680 MG, OTHER
     Route: 040
     Dates: start: 20220906, end: 20220906
  32. ISATUXIMAB [Suspect]
     Active Substance: ISATUXIMAB
     Dosage: 680 MG, OTHER
     Route: 040
     Dates: start: 20220712, end: 20220712
  33. ISATUXIMAB [Suspect]
     Active Substance: ISATUXIMAB
     Dosage: 680 MG, QW
     Route: 040
     Dates: start: 20211122, end: 20211122
  34. ISATUXIMAB [Suspect]
     Active Substance: ISATUXIMAB
     Dosage: 680 MG, OTHER
     Route: 040
     Dates: start: 20211220, end: 20211220
  35. ACYCLOVIR [Concomitant]
     Active Substance: ACYCLOVIR
     Indication: Infection prophylaxis
     Dosage: UNK
     Dates: start: 20170911
  36. METAMIZOLE [Concomitant]
     Active Substance: METAMIZOLE
     Indication: Bone pain
     Dosage: UNK
     Dates: start: 20170815
  37. POLYETHYLENE GLYCOLS [Concomitant]
     Active Substance: POLYETHYLENE GLYCOLS
     Indication: Constipation
     Dosage: UNK UNK, PRN
     Dates: start: 2017
  38. SULFAMETHOXAZOLE\TRIMETHOPRIM [Concomitant]
     Active Substance: SULFAMETHOXAZOLE\TRIMETHOPRIM
     Indication: Infection prophylaxis
     Dosage: UNK
     Dates: start: 20170911
  39. MONTELUKAST [Concomitant]
     Active Substance: MONTELUKAST SODIUM
     Indication: Rhinitis allergic
     Dosage: UNK
     Dates: start: 20211025
  40. PREGABALIN [Concomitant]
     Active Substance: PREGABALIN
     Indication: Bone pain
     Dosage: UNK
     Dates: start: 20170911
  41. TAMSULOSIN [Concomitant]
     Active Substance: TAMSULOSIN
     Indication: Benign prostatic hyperplasia
     Dosage: UNK
     Dates: start: 2005
  42. HUMAN RED BLOOD CELL [Concomitant]
     Active Substance: HUMAN RED BLOOD CELL
     Indication: Anaemia
     Dosage: UNK
     Dates: start: 20210927
  43. HYDROMORPHONE [Concomitant]
     Active Substance: HYDROMORPHONE
     Indication: Bone pain
     Dosage: UNK
     Dates: start: 20170815
  44. ALIZAPRIDE [Concomitant]
     Active Substance: ALIZAPRIDE
     Indication: Nausea
     Dosage: UNK
     Dates: start: 20211102
  45. PLATELETS [Concomitant]
     Active Substance: HUMAN PLATELET, ALLOGENIC
     Indication: Thrombocytopenia
     Dosage: UNK
     Dates: start: 20210601
  46. ACETAMINOPHEN [Concomitant]
     Active Substance: ACETAMINOPHEN
     Indication: Pyrexia
     Dosage: UNK
  47. CLEMASTINE [Concomitant]
     Active Substance: CLEMASTINE
     Indication: Allergy prophylaxis
     Dosage: UNK
  48. PANTOPRAZOLE SODIUM [Concomitant]
     Active Substance: PANTOPRAZOLE SODIUM
     Indication: Gastritis prophylaxis
     Dosage: UNK
     Dates: start: 20201026
  49. PAMIDRONATE [Concomitant]
     Active Substance: PAMIDRONATE DISODIUM
     Indication: Osteolysis
     Dosage: UNK
     Dates: start: 20170815
  50. FOLIC ACID [Concomitant]
     Active Substance: FOLIC ACID
     Dosage: UNK
     Route: 065
     Dates: start: 20221006
  51. VITAMIN B12 [Concomitant]
     Active Substance: CYANOCOBALAMIN
     Dosage: UNK
     Route: 065
     Dates: start: 20221006

REACTIONS (16)
  - Neutropenia [Recovered/Resolved]
  - Neutropenia [Recovered/Resolved]
  - Haematochezia [Recovered/Resolved]
  - Haematochezia [Recovered/Resolved]
  - Neutropenia [Recovered/Resolved]
  - Febrile neutropenia [Recovering/Resolving]
  - Febrile neutropenia [Recovered/Resolved]
  - Petechiae [Recovered/Resolved]
  - Heart rate increased [Recovered/Resolved]
  - Cough [Recovering/Resolving]
  - Vomiting [Recovered/Resolved]
  - Tachycardia [Recovered/Resolved]
  - General physical health deterioration [Unknown]
  - Cough [Recovering/Resolving]
  - Pulpitis dental [Recovering/Resolving]
  - Vomiting [Recovered/Resolved]

NARRATIVE: CASE EVENT DATE: 20211102
